FAERS Safety Report 8787484 (Version 1)
Quarter: 2012Q4

REPORT INFORMATION
  Report Type: Report from Study
  Country: US (occurrence: US)
  Receive Date: 20120914
  Receipt Date: 20120914
  Transmission Date: 20130627
  Serious: Yes (Hospitalization)
  Sender: FDA-Public Use
  Company Number: US-VERTEX PHARMACEUTICAL INC.-AE-2012-007302

PATIENT
  Age: 63 None
  Sex: Male
  Weight: 114.55 kg

DRUGS (17)
  1. INCIVEK [Suspect]
     Indication: HEPATITIS C
     Route: 048
     Dates: start: 20120426, end: 20120719
  2. RIBAPAK [Concomitant]
     Indication: HEPATITIS C
     Route: 048
     Dates: start: 20120426, end: 20120719
  3. PEGASYS PROCLICK [Concomitant]
     Indication: HEPATITIS C
     Route: 058
     Dates: start: 20120426, end: 20120719
  4. MOTRIN [Concomitant]
     Route: 048
  5. OMEPRAZOLE [Concomitant]
     Route: 048
  6. FEXOFENADINE [Concomitant]
     Route: 048
  7. HYDROCHLOROT [Concomitant]
     Indication: OEDEMA
     Route: 048
  8. HYDROCHLOROT [Concomitant]
     Indication: HYPERTENSION
     Route: 048
  9. METOPROLOL ER [Concomitant]
     Indication: HYPERTENSION
     Route: 048
  10. METOPROLOL ER [Concomitant]
     Route: 048
  11. DIPHENHYDRAM [Concomitant]
     Route: 048
  12. SULINDAC [Concomitant]
     Route: 048
  13. HYDROCO/APAP [Concomitant]
     Route: 048
  14. GLUCOSAMINE [Concomitant]
     Route: 048
  15. CINNAMON [Concomitant]
     Route: 048
  16. FERROUS SULFATE [Concomitant]
     Route: 048
  17. IBUPROFEN [Concomitant]
     Indication: PAIN
     Route: 048

REACTIONS (12)
  - Anaemia [Recovered/Resolved]
  - White blood cell count decreased [Unknown]
  - Photophobia [Unknown]
  - Sensation of heaviness [Unknown]
  - Chest discomfort [Unknown]
  - Decreased appetite [Not Recovered/Not Resolved]
  - Dizziness [Unknown]
  - Fatigue [Unknown]
  - Rash pruritic [Recovered/Resolved]
  - Skin exfoliation [Unknown]
  - Dysgeusia [Unknown]
  - Nausea [Not Recovered/Not Resolved]
